FAERS Safety Report 11879095 (Version 1)
Quarter: 2015Q4

REPORT INFORMATION
  Report Type: Spontaneous
  Country: US (occurrence: US)
  Receive Date: 20151230
  Receipt Date: 20151230
  Transmission Date: 20160305
  Serious: Yes (Death, Hospitalization)
  Sender: FDA-Public Use
  Company Number: US-SA-2015SA221762

PATIENT
  Sex: Male

DRUGS (1)
  1. FABRAZYME [Suspect]
     Active Substance: AGALSIDASE BETA
     Route: 041

REACTIONS (4)
  - Weight increased [Unknown]
  - Hospitalisation [Unknown]
  - Death [Fatal]
  - Waist circumference increased [Unknown]

NARRATIVE: CASE EVENT DATE: 2015
